FAERS Safety Report 9186312 (Version 2)
Quarter: 2013Q2

REPORT INFORMATION
  Report Type: Report from Study
  Country: US (occurrence: US)
  Receive Date: 20130325
  Receipt Date: 20130619
  Transmission Date: 20140414
  Serious: Yes (Hospitalization, Other)
  Sender: FDA-Public Use
  Company Number: US-ABBOTT-13P-163-1064590-00

PATIENT
  Age: 26 Year
  Sex: Male
  Weight: 79.45 kg

DRUGS (4)
  1. HUMIRA [Suspect]
     Indication: CROHN^S DISEASE
     Dates: start: 201205, end: 201207
  2. HUMIRA [Suspect]
     Dates: start: 201302
  3. PREDNISONE [Concomitant]
     Indication: PRODUCT USED FOR UNKNOWN INDICATION
     Dates: start: 201204
  4. MERCAPTOPURINE [Concomitant]
     Indication: PRODUCT USED FOR UNKNOWN INDICATION

REACTIONS (8)
  - Gastrointestinal anastomotic leak [Recovered/Resolved]
  - Intestinal resection [Unknown]
  - Ileostomy closure [Recovered/Resolved]
  - Small intestinal resection [Recovered/Resolved]
  - Crohn^s disease [Recovered/Resolved]
  - Pain [Unknown]
  - Abdominal exploration [Recovered/Resolved]
  - Hospitalisation [Unknown]
